FAERS Safety Report 8338700-3 (Version None)
Quarter: 2012Q2

REPORT INFORMATION
  Report Type: 
  Country: None (occurrence: None)
  Receive Date: 20120504
  Receipt Date: 20120426
  Transmission Date: 20120825
  Serious: No
  Sender: FDA-Public Use
  Company Number: GB-ABBOTT-12P-167-0917131-00

PATIENT
  Age: 41 Year
  Sex: Male
  Weight: 81 kg

DRUGS (2)
  1. TESTOSTERONE [Suspect]
     Indication: ANDROGEN DEFICIENCY
     Route: 062
     Dates: start: 20110501
  2. NEBIDO [Concomitant]
     Indication: ANDROGEN DEFICIENCY
     Dosage: 1000 MG/4ML
     Route: 050
     Dates: start: 20110101

REACTIONS (1)
  - DRUG INEFFECTIVE [None]
